FAERS Safety Report 24605946 (Version 2)
Quarter: 2024Q4

REPORT INFORMATION
  Report Type: Spontaneous
  Country: US (occurrence: US)
  Receive Date: 20241111
  Receipt Date: 20241204
  Transmission Date: 20250115
  Serious: Yes (Other)
  Sender: ORGANON
  Company Number: US-ORGANON-O2411USA000461

PATIENT
  Sex: Female

DRUGS (6)
  1. NEXPLANON [Suspect]
     Active Substance: ETONOGESTREL
     Indication: Epilepsy
     Dosage: 1 IMPLANT FOR 3 YEARS
     Route: 059
     Dates: start: 2017, end: 2020
  2. NEXPLANON [Suspect]
     Active Substance: ETONOGESTREL
     Indication: Seizure
  3. NEXPLANON [Suspect]
     Active Substance: ETONOGESTREL
     Indication: Epilepsy
     Dosage: 1 IMPLANT (68 MG) EVERY THREE YEAR
     Route: 059
     Dates: start: 2020, end: 20230829
  4. NEXPLANON [Suspect]
     Active Substance: ETONOGESTREL
     Indication: Seizure
  5. NEXPLANON [Suspect]
     Active Substance: ETONOGESTREL
     Indication: Epilepsy
     Dosage: 1 IMPLANT (68 MG) IN RIGHT ARM
     Route: 059
     Dates: start: 20230829
  6. NEXPLANON [Suspect]
     Active Substance: ETONOGESTREL
     Indication: Seizure

REACTIONS (10)
  - Seizure [Not Recovered/Not Resolved]
  - Weight increased [Recovered/Resolved]
  - Complication of device removal [Recovered/Resolved]
  - Device placement issue [Not Recovered/Not Resolved]
  - Weight decreased [Not Recovered/Not Resolved]
  - Product use in unapproved indication [Unknown]
  - Product use in unapproved indication [Unknown]
  - Product use in unapproved indication [Unknown]
  - Drug effective for unapproved indication [Unknown]
  - Drug effective for unapproved indication [Unknown]

NARRATIVE: CASE EVENT DATE: 20170101
